FAERS Safety Report 4365264-1 (Version None)
Quarter: 2004Q2

REPORT INFORMATION
  Report Type: 
  Country: None (occurrence: None)
  Receive Date: 20040521
  Receipt Date: 20040512
  Transmission Date: 20050107
  Serious: Yes (Life-Threatening)
  Sender: FDA-Public Use
  Company Number: HQWYE648529APR04

PATIENT
  Age: 47 Year
  Sex: Male

DRUGS (1)
  1. AMIODARONE HCL [Suspect]
     Indication: SUPRAVENTRICULAR TACHYCARDIA
     Dosage: 200 MG 2 X PER 1 DAY
     Route: 045
     Dates: start: 20040412, end: 20040419

REACTIONS (3)
  - PULMONARY HAEMORRHAGE [None]
  - PYREXIA [None]
  - RESPIRATORY DISORDER [None]
